FAERS Safety Report 10767860 (Version 1)
Quarter: 2015Q1

REPORT INFORMATION
  Report Type: Report from Study
  Country: US (occurrence: US)
  Receive Date: 20150205
  Receipt Date: 20150205
  Transmission Date: 20150721
  Serious: Yes (Death)
  Sender: FDA-Public Use
  Company Number: US-INTERMUNE, INC.-201412IM007851

PATIENT
  Age: 68 Year
  Sex: Female

DRUGS (12)
  1. DILTIAZEM [Concomitant]
     Active Substance: DILTIAZEM
     Dosage: 180 MG
     Route: 048
  2. VITAMIN D3 [Concomitant]
     Active Substance: CHOLECALCIFEROL
     Dosage: 1000 UNITS
     Route: 048
  3. SYNTHROID [Concomitant]
     Active Substance: LEVOTHYROXINE SODIUM
     Route: 048
  4. MEGACE [Concomitant]
     Active Substance: MEGESTROL ACETATE
     Indication: DECREASED APPETITE
     Dosage: 400 MG
     Route: 048
  5. TESSALON [Concomitant]
     Active Substance: BENZONATATE
     Dosage: 300 MG
     Route: 048
  6. ESBRIET [Suspect]
     Active Substance: PIRFENIDONE
     Route: 048
     Dates: start: 20141116
  7. PROTONIX [Concomitant]
     Active Substance: PANTOPRAZOLE SODIUM
     Dosage: 40 MG
     Route: 048
  8. OXYGEN. [Concomitant]
     Active Substance: OXYGEN
  9. ESBRIET [Suspect]
     Active Substance: PIRFENIDONE
     Dosage: 534 MG
     Route: 048
  10. VOLTAREN TOPICAL GEL [Concomitant]
     Route: 061
  11. MIRTAZAPINE. [Concomitant]
     Active Substance: MIRTAZAPINE
     Dosage: 15 MG
     Route: 048
  12. VITAMIN B12 [Concomitant]
     Active Substance: CYANOCOBALAMIN

REACTIONS (1)
  - Interstitial lung disease [Fatal]

NARRATIVE: CASE EVENT DATE: 20141127
